FAERS Safety Report 8042541-4 (Version None)
Quarter: 2012Q1

REPORT INFORMATION
  Report Type: 
  Country: None (occurrence: None)
  Receive Date: 20120112
  Receipt Date: 20120106
  Transmission Date: 20120608
  Serious: Yes (Hospitalization)
  Sender: FDA-Public Use
  Company Number: FR-PFIZER INC-2012004049

PATIENT
  Age: 65 Year
  Sex: Female

DRUGS (3)
  1. EUPRESSYL [Concomitant]
     Dosage: 60 MG, 1X/DAY
     Route: 048
     Dates: start: 20111125, end: 20111130
  2. CLINDAMYCIN HCL [Suspect]
     Indication: ABSCESS BACTERIAL
     Dosage: UNK
     Dates: start: 20111125, end: 20111130
  3. TARGOCID [Suspect]
     Indication: ABSCESS BACTERIAL
     Dosage: UNK
     Route: 042
     Dates: start: 20111125, end: 20111130

REACTIONS (2)
  - ACUTE GENERALISED EXANTHEMATOUS PUSTULOSIS [None]
  - HEPATITIS CHOLESTATIC [None]
